FAERS Safety Report 8702222 (Version 2)
Quarter: 2013Q4

REPORT INFORMATION
  Report Type: Report from Study
  Country: JP (occurrence: JP)
  Receive Date: 20120803
  Receipt Date: 20131107
  Transmission Date: 20140711
  Serious: Yes (Hospitalization)
  Sender: FDA-Public Use
  Company Number: JP-009507513-1207JPN012600

PATIENT
  Age: 62 Year
  Sex: Male
  Weight: 63 kg

DRUGS (11)
  1. PEGINTRON [Suspect]
     Indication: HEPATITIS C
     Dosage: 1.5G/KG/WEEK
     Route: 058
     Dates: start: 20120516, end: 20120522
  2. PEGINTRON [Suspect]
     Indication: HEPATITIS C
     Dosage: 0.8G/KG/WEEK
     Route: 058
     Dates: start: 20120523
  3. REBETOL [Suspect]
     Indication: HEPATITIS C
     Route: 048
     Dates: start: 20120516, end: 20120528
  4. REBETOL [Suspect]
     Indication: HEPATITIS C
     Route: 048
     Dates: start: 20120529
  5. TELAVIC [Suspect]
     Indication: HEPATITIS C
     Route: 048
     Dates: start: 20120516, end: 20120523
  6. TELAVIC [Suspect]
     Route: 048
     Dates: start: 20120524
  7. URSO [Concomitant]
     Indication: HEPATITIS C
     Route: 048
     Dates: end: 20120606
  8. BLOPRESS [Concomitant]
     Indication: HYPERTENSION
     Route: 048
  9. AMLODIN OD [Concomitant]
     Indication: HYPERTENSION
     Route: 048
  10. BAYASPIRIN [Concomitant]
     Indication: CEREBRAL INFARCTION
     Route: 048
  11. ACINON [Concomitant]
     Indication: PROPHYLAXIS
     Route: 048

REACTIONS (2)
  - Renal disorder [Recovered/Resolved]
  - Hyperuricaemia [Recovered/Resolved]
